FAERS Safety Report 9308355 (Version 1)
Quarter: 2013Q2

REPORT INFORMATION
  Report Type: Spontaneous
  Country: JP (occurrence: JP)
  Receive Date: 20130524
  Receipt Date: 20130524
  Transmission Date: 20140414
  Serious: Yes (Other)
  Sender: FDA-Public Use
  Company Number: JP-VIIV HEALTHCARE LIMITED-B0892843A

PATIENT
  Age: 6 Decade
  Sex: Male

DRUGS (7)
  1. EPZICOM [Suspect]
     Indication: HIV INFECTION
     Dosage: 1IUAX PER DAY
     Route: 048
  2. ISENTRESS [Concomitant]
     Indication: HIV INFECTION
     Dosage: 1IUAX TWICE PER DAY
     Route: 048
  3. TRUVADA [Concomitant]
     Route: 048
  4. LOPINAVIR + RITONAVIR [Concomitant]
     Route: 048
  5. RALTEGRAVIR POTASSIUM [Concomitant]
     Route: 048
  6. ABACAVIR SULFATE [Concomitant]
     Route: 048
  7. LAMIVUDINE-HIV [Concomitant]
     Route: 048

REACTIONS (6)
  - Aspergillus infection [Unknown]
  - Ileus [Unknown]
  - Renal failure [Unknown]
  - Dyslalia [Recovered/Resolved]
  - Strongyloidiasis [Unknown]
  - Dehydration [Unknown]
